FAERS Safety Report 10460934 (Version 1)
Quarter: 2014Q3

REPORT INFORMATION
  Report Type: Spontaneous
  Country: ES (occurrence: None)
  Receive Date: 20140904
  Receipt Date: 20140904
  Transmission Date: 20150326
  Serious: Yes (Death)
  Sender: FDA-Public Use
  Company Number: GAM-285-14-ES

PATIENT
  Age: 78 Year
  Sex: Female

DRUGS (1)
  1. OCTAGAMOCTA [Suspect]
     Active Substance: HUMAN IMMUNOGLOBULIN G
     Indication: MYASTHENIA GRAVIS
     Dosage: (1X 1/TOTAL)
     Route: 042
     Dates: start: 20140722, end: 20140722

REACTIONS (1)
  - Cardio-respiratory arrest [None]

NARRATIVE: CASE EVENT DATE: 20140722
